FAERS Safety Report 8516570-8 (Version None)
Quarter: 2012Q3

REPORT INFORMATION
  Report Type: 
  Country: None (occurrence: None)
  Receive Date: 20120711
  Receipt Date: 20120711
  Transmission Date: 20120928
  Serious: Yes (Other)
  Sender: FDA-Public Use
  Company Number: None

PATIENT
  Age: 26 Year
  Sex: Female
  Weight: 94.8018 kg

DRUGS (1)
  1. MIRENA [Suspect]
     Indication: CONTRACEPTION
     Dates: start: 20100101, end: 20110401

REACTIONS (5)
  - HORMONE LEVEL ABNORMAL [None]
  - MENORRHAGIA [None]
  - MOOD SWINGS [None]
  - ALOPECIA [None]
  - INFERTILITY [None]
